FAERS Safety Report 10784615 (Version 4)
Quarter: 2015Q1

REPORT INFORMATION
  Report Type: Report from Study
  Country: GB (occurrence: GB)
  Receive Date: 20150211
  Receipt Date: 20150330
  Transmission Date: 20150721
  Serious: No
  Sender: FDA-Public Use
  Company Number: GB-JNJFOC-20150104664

PATIENT
  Sex: Female

DRUGS (1)
  1. STELARA [Suspect]
     Active Substance: USTEKINUMAB
     Indication: PSORIASIS
     Route: 058
     Dates: start: 20120919

REACTIONS (5)
  - Malaise [Unknown]
  - Liver function test abnormal [Recovering/Resolving]
  - Rash macular [Not Recovered/Not Resolved]
  - Influenza like illness [Recovering/Resolving]
  - Night sweats [Unknown]
